FAERS Safety Report 5556833-1 (Version None)
Quarter: 2007Q4

REPORT INFORMATION
  Report Type: 
  Country: None (occurrence: None)
  Receive Date: 20071211
  Receipt Date: 20071211
  Transmission Date: 20080405
  Serious: No
  Sender: FDA-Public Use
  Company Number: None

PATIENT

DRUGS (1)
  1. LEVAQUIN [Suspect]

REACTIONS (59)
  - AMNESIA [None]
  - ANOREXIA [None]
  - ANXIETY [None]
  - ARRHYTHMIA [None]
  - ARTHRITIS [None]
  - ASTHENIA [None]
  - BALANCE DISORDER [None]
  - BLEPHAROSPASM [None]
  - BONE PAIN [None]
  - BURNING SENSATION [None]
  - CHEST DISCOMFORT [None]
  - CHEST PAIN [None]
  - CHILLS [None]
  - CRYING [None]
  - DAYDREAMING [None]
  - DEPRESSION [None]
  - DISCOMFORT [None]
  - DIZZINESS [None]
  - DIZZINESS POSTURAL [None]
  - DRUG DEPENDENCE [None]
  - DYSAESTHESIA [None]
  - DYSPEPSIA [None]
  - DYSPNOEA [None]
  - FEELING ABNORMAL [None]
  - FEELING COLD [None]
  - HALLUCINATION, VISUAL [None]
  - HEADACHE [None]
  - HUNGER [None]
  - INSOMNIA [None]
  - MOOD ALTERED [None]
  - MORBID THOUGHTS [None]
  - MUSCLE SPASMS [None]
  - MUSCLE TWITCHING [None]
  - MUSCULOSKELETAL DISCOMFORT [None]
  - MUSCULOSKELETAL PAIN [None]
  - MUSCULOSKELETAL STIFFNESS [None]
  - MYALGIA [None]
  - NAUSEA [None]
  - NECK PAIN [None]
  - NIGHTMARE [None]
  - OESOPHAGEAL DISCOMFORT [None]
  - OESOPHAGEAL PAIN [None]
  - PAIN IN EXTREMITY [None]
  - PAIN OF SKIN [None]
  - PALPITATIONS [None]
  - PANIC ATTACK [None]
  - PARAESTHESIA [None]
  - PERIPHERAL COLDNESS [None]
  - PRURITUS GENERALISED [None]
  - RASH PAPULAR [None]
  - RESPIRATORY SIGHS [None]
  - RESTLESSNESS [None]
  - SCIATICA [None]
  - SENSORY DISTURBANCE [None]
  - TENDON PAIN [None]
  - TINNITUS [None]
  - UNDERWEIGHT [None]
  - VARICOSE VEIN [None]
  - WEIGHT DECREASED [None]
